FAERS Safety Report 9327488 (Version 2)
Quarter: 2013Q3

REPORT INFORMATION
  Report Type: Spontaneous
  Country: US (occurrence: US)
  Receive Date: 20130604
  Receipt Date: 20130718
  Transmission Date: 20140515
  Serious: No
  Sender: FDA-Public Use
  Company Number: US-PFIZER INC-2013166599

PATIENT
  Sex: Male

DRUGS (1)
  1. NITROSTAT [Suspect]
     Indication: CHEST PAIN
     Dosage: 0.4 MG, AS NEEDED
     Route: 048

REACTIONS (1)
  - Drug ineffective [Unknown]
